FAERS Safety Report 5031065-4 (Version None)
Quarter: 2006Q2

REPORT INFORMATION
  Report Type: 
  Country: None (occurrence: None)
  Receive Date: 20060619
  Receipt Date: 20060619
  Transmission Date: 20061013
  Serious: Yes (Other)
  Sender: FDA-Public Use
  Company Number: None

PATIENT
  Sex: Female
  Weight: 74.8435 kg

DRUGS (2)
  1. KLONOPIN [Suspect]
     Indication: ANXIETY
     Dosage: 0.5 MG 3 X DAY PRN
     Dates: start: 20060606, end: 20060616
  2. KLONOPIN [Suspect]
     Indication: PANIC ATTACK
     Dosage: 0.5 MG 3 X DAY PRN
     Dates: start: 20060606, end: 20060616

REACTIONS (4)
  - DRUG DISPENSING ERROR [None]
  - INCORRECT DOSE ADMINISTERED [None]
  - MEDICATION ERROR [None]
  - PANIC ATTACK [None]
